FAERS Safety Report 4864695-0 (Version None)
Quarter: 2005Q4

REPORT INFORMATION
  Report Type: 
  Country: None (occurrence: None)
  Receive Date: 20051222
  Receipt Date: 20050909
  Transmission Date: 20060501
  Serious: Yes (Hospitalization)
  Sender: FDA-Public Use
  Company Number: US-MERCK-0509USA01677

PATIENT
  Age: 53 Year
  Sex: Female
  Weight: 87 kg

DRUGS (5)
  1. VIOXX [Suspect]
     Indication: ARTHRALGIA
     Route: 048
     Dates: start: 19991025, end: 20040809
  2. EFFEXOR [Concomitant]
     Indication: DEPRESSION
     Route: 065
  3. PREVACID [Concomitant]
     Indication: GASTROOESOPHAGEAL REFLUX DISEASE
     Route: 065
  4. SYNTHROID [Concomitant]
     Indication: HYPOTHYROIDISM
     Route: 065
  5. ZOLOFT [Concomitant]
     Indication: DEPRESSION
     Route: 065
     Dates: start: 19940101, end: 20000101

REACTIONS (4)
  - ABDOMINAL PAIN [None]
  - HYPERTENSIVE CARDIOMYOPATHY [None]
  - MYOCARDIAL INFARCTION [None]
  - OEDEMA [None]
